FAERS Safety Report 6444672-9 (Version None)
Quarter: 2009Q4

REPORT INFORMATION
  Report Type: 
  Country: None (occurrence: None)
  Receive Date: 20091118
  Receipt Date: 20091113
  Transmission Date: 20100525
  Serious: Yes (Death, Hospitalization, Other)
  Sender: FDA-Public Use
  Company Number: IN-ELI_LILLY_AND_COMPANY-IN200911003404

PATIENT
  Sex: Male

DRUGS (3)
  1. XIGRIS [Suspect]
     Indication: PNEUMONIA
     Dosage: UNK, UNKNOWN
     Route: 042
     Dates: start: 20091112, end: 20091112
  2. VASOPRESSIN AND ANALOGUES [Concomitant]
     Dosage: UNK, UNKNOWN
     Route: 065
  3. ANTIBIOTICS [Concomitant]
     Dosage: UNK, UNKNOWN
     Route: 065

REACTIONS (2)
  - INTERNATIONAL NORMALISED RATIO INCREASED [None]
  - MULTI-ORGAN DISORDER [None]
